FAERS Safety Report 19651456 (Version 1)
Quarter: 2021Q3

REPORT INFORMATION
  Report Type: Spontaneous
  Country: US (occurrence: US)
  Receive Date: 20210803
  Receipt Date: 20210803
  Transmission Date: 20211014
  Serious: No
  Sender: FDA-Public Use
  Company Number: US-009507513-2107USA001978

PATIENT
  Age: 11 Year
  Sex: Female

DRUGS (1)
  1. PROVENTIL [Suspect]
     Active Substance: ALBUTEROL
     Indication: ASTHMA
     Dosage: ON AN AS NEEDED BASIS

REACTIONS (5)
  - Paranoia [Recovered/Resolved]
  - Delusion [Recovered/Resolved]
  - Bronchospasm paradoxical [Recovered/Resolved]
  - Mood altered [Recovered/Resolved]
  - Anxiety [Recovered/Resolved]
